FAERS Safety Report 12647887 (Version 1)
Quarter: 2016Q3

REPORT INFORMATION
  Report Type: Spontaneous
  Country: CH (occurrence: CH)
  Receive Date: 20160812
  Receipt Date: 20160812
  Transmission Date: 20161109
  Serious: Yes (Hospitalization)
  Sender: FDA-Public Use
  Company Number: CH-PFIZER INC-2016377258

PATIENT
  Age: 17 Year
  Sex: Male
  Weight: 62 kg

DRUGS (24)
  1. KETOROLAC [Interacting]
     Active Substance: KETOROLAC\KETOROLAC TROMETHAMINE
     Indication: POSTOPERATIVE ANALGESIA
     Dosage: 30 MG, 1X
     Route: 040
     Dates: start: 20160704, end: 20160704
  2. ACETYLCYSTEIN [Concomitant]
     Active Substance: ACETYLCYSTEINE
     Dosage: 30 GTT, 3X/DAY
     Route: 048
     Dates: start: 2016
  3. METHOTREXATE SODIUM. [Suspect]
     Active Substance: METHOTREXATE SODIUM
     Indication: B-CELL LYMPHOMA
     Dosage: 8650 MG: 865 MG ON 04JUL2016 (30 MIN. PERFUSION), 7785 MG ON 04JUL2016 AND 05JUL2016 (23.5 H PERF.)
     Route: 041
     Dates: start: 20160704, end: 20160705
  4. METAMIZOL /06276702/ [Interacting]
     Active Substance: METAMIZOLE
     Indication: POSTOPERATIVE ANALGESIA
     Dosage: 600 MG, 1X
     Route: 040
     Dates: start: 20160704, end: 20160704
  5. PENTACARINAT [Interacting]
     Active Substance: PENTAMIDINE ISETHIONATE
     Indication: ANTIFUNGAL PROPHYLAXIS
     Dosage: 300 MG, MONTHLY
     Route: 055
     Dates: start: 2016
  6. MERCAPTOPURIN [Concomitant]
     Active Substance: MERCAPTOPURINE
     Dosage: 25 MG, 1X/DAY SATURDAY TO SUNDAY)
  7. LORAZEPAM. [Concomitant]
     Active Substance: LORAZEPAM
     Dosage: 1 MG, AS NEEDED MAX. 3X/DAY
     Route: 048
     Dates: start: 2016
  8. FUROSEMID [Concomitant]
     Active Substance: FUROSEMIDE
     Dosage: 30 MG, 1X
     Dates: start: 20160706, end: 20160706
  9. MIDAZOLAM [Concomitant]
     Active Substance: MIDAZOLAM\MIDAZOLAM HYDROCHLORIDE
     Dates: start: 20160704, end: 20160704
  10. REMIFENTANIL [Concomitant]
     Active Substance: REMIFENTANIL
     Dates: start: 20160704, end: 20160704
  11. ZOFRAN [Concomitant]
     Active Substance: ONDANSETRON HYDROCHLORIDE
     Dosage: 8 MG, 3X/DAY
     Route: 048
     Dates: start: 2016
  12. NEBILET [Concomitant]
     Active Substance: NEBIVOLOL
     Dosage: 2.5 MG, 2X/DAY
     Route: 048
     Dates: start: 2016
  13. CLEMASTIN [Concomitant]
     Active Substance: CLEMASTINE
     Dosage: 2 MG, AS NEEDED MAX. 2X/DAY
     Route: 040
     Dates: start: 2016
  14. PARACETAMOL [Concomitant]
     Active Substance: ACETAMINOPHEN
     Dosage: 1 G, AS NEEDED MAX. 4X/DAY
     Route: 048
     Dates: start: 2016
  15. CLEXANE [Concomitant]
     Active Substance: ENOXAPARIN SODIUM
     Route: 058
     Dates: start: 2016
  16. NALBUPHINE [Concomitant]
     Active Substance: NALBUPHINE
     Dosage: 6 MG, 3X
     Dates: start: 20160704, end: 20160704
  17. METHOTREXATE SODIUM. [Interacting]
     Active Substance: METHOTREXATE SODIUM
     Dosage: 12 MG, 1X
     Route: 037
     Dates: start: 20160704, end: 20160704
  18. MACROGOL [Concomitant]
     Active Substance: POLYETHYLENE GLYCOLS
     Dosage: 1 DF, 1X/DAY
     Route: 048
     Dates: start: 2016
  19. PROPOFOL. [Concomitant]
     Active Substance: PROPOFOL
     Dates: start: 20160704, end: 20160704
  20. EPHEDRIN [Concomitant]
     Active Substance: EPHEDRINE HYDROCHLORIDE
     Dates: start: 20160704, end: 20160704
  21. MERCAPTOPURIN [Concomitant]
     Active Substance: MERCAPTOPURINE
     Dosage: 50 MG, 1X/DAY (MONDAY TO FRIDAY)
     Dates: start: 20160602
  22. TRIATEC /00885601/ [Concomitant]
     Active Substance: RAMIPRIL
     Route: 048
     Dates: start: 2016
  23. SEVOFLURANE. [Concomitant]
     Active Substance: SEVOFLURANE
     Dates: start: 20160704, end: 20160704
  24. ALFENTANIL. [Concomitant]
     Active Substance: ALFENTANIL
     Dates: start: 20160704, end: 20160704

REACTIONS (3)
  - Toxicity to various agents [Recovering/Resolving]
  - Drug interaction [Recovering/Resolving]
  - Drug interaction [Recovered/Resolved]

NARRATIVE: CASE EVENT DATE: 20160704
